FAERS Safety Report 8361490-5 (Version None)
Quarter: 2012Q2

REPORT INFORMATION
  Report Type: 
  Country: None (occurrence: None)
  Receive Date: 20120514
  Receipt Date: 20120504
  Transmission Date: 20120825
  Serious: Yes (Life-Threatening, Hospitalization)
  Sender: FDA-Public Use
  Company Number: A0977029A

PATIENT
  Age: 26 Year
  Sex: Female

DRUGS (5)
  1. PAROXETINE HYDROCHLORIDE [Suspect]
     Indication: STRESS
  2. SERTRALINE HYDROCHLORIDE [Suspect]
     Indication: DEPRESSION
  3. FLUOXETINE [Suspect]
     Indication: DEPRESSION
  4. VENLAFAXINE HYDROCHLORIDE [Suspect]
     Indication: STRESS
  5. CITALOPRAM HYDROBROMIDE [Suspect]
     Indication: DEPRESSION

REACTIONS (6)
  - AKATHISIA [None]
  - AKINESIA [None]
  - DRUG INTERACTION [None]
  - OVERDOSE [None]
  - SUICIDE ATTEMPT [None]
  - PHYSICAL ASSAULT [None]
